FAERS Safety Report 7056356-7 (Version None)
Quarter: 2010Q4

REPORT INFORMATION
  Report Type: 
  Country: None (occurrence: None)
  Receive Date: 20101021
  Receipt Date: 20101014
  Transmission Date: 20110411
  Serious: Yes (Other)
  Sender: FDA-Public Use
  Company Number: US-ABBOTT-10P-163-0678438-00

PATIENT
  Sex: Female
  Weight: 56.75 kg

DRUGS (2)
  1. HUMIRA [Suspect]
     Indication: ACNE
     Dates: start: 20100801
  2. HUMIRA [Suspect]
     Dates: end: 20100201

REACTIONS (2)
  - OVARIAN CYST [None]
  - VAGINAL HAEMORRHAGE [None]
